FAERS Safety Report 7153645-2 (Version None)
Quarter: 2010Q4

REPORT INFORMATION
  Report Type: 
  Country: None (occurrence: None)
  Receive Date: 20101130
  Receipt Date: 20101116
  Transmission Date: 20110411
  Serious: Yes (Hospitalization, Other)
  Sender: FDA-Public Use
  Company Number: 020843

PATIENT
  Sex: Female

DRUGS (9)
  1. CERTOLIZUMAB PEGOL (CERTOLIZUMAB PEGOL) [Suspect]
     Indication: RHEUMATOID ARTHRITIS
     Dosage: SEE IMAGE
     Route: 058
     Dates: start: 20091117, end: 20091215
  2. CERTOLIZUMAB PEGOL (CERTOLIZUMAB PEGOL) [Suspect]
     Indication: RHEUMATOID ARTHRITIS
     Dosage: SEE IMAGE
     Route: 058
     Dates: start: 20091229, end: 20100126
  3. CERTOLIZUMAB PEGOL (CERTOLIZUMAB PEGOL) [Suspect]
     Indication: RHEUMATOID ARTHRITIS
     Dosage: SEE IMAGE
     Route: 058
     Dates: start: 20100824, end: 20100929
  4. DOLQUINE [Concomitant]
  5. METHOTREXATE [Concomitant]
  6. MELOXICAM [Concomitant]
  7. ACFOL [Concomitant]
  8. BONIVA [Concomitant]
  9. COLECALCIFEROL [Concomitant]

REACTIONS (3)
  - CELLULITIS [None]
  - MYOSITIS [None]
  - SEPSIS [None]
